FAERS Safety Report 5242200-7 (Version None)
Quarter: 2007Q1

REPORT INFORMATION
  Report Type: 
  Country: None (occurrence: None)
  Receive Date: 20070213
  Receipt Date: 20070131
  Transmission Date: 20070707
  Serious: Yes (Hospitalization)
  Sender: FDA-Public Use
  Company Number: TCI2006A05995

PATIENT
  Age: 57 Year
  Sex: Male

DRUGS (5)
  1. ACTOS [Suspect]
     Indication: INSULIN-REQUIRING TYPE II DIABETES MELLITUS
     Dosage: 15 MG (15 MG, 1 D) PER ORAL
     Route: 048
     Dates: start: 20050608
  2. NATEGLINIDE [Suspect]
     Indication: INSULIN-REQUIRING TYPE II DIABETES MELLITUS
     Dosage: 270 MG (90 MG, 3 IN 1 D) PER ORAL
     Route: 048
     Dates: start: 20050928, end: 20060927
  3. NATEGLINIDE [Suspect]
     Indication: INSULIN-REQUIRING TYPE II DIABETES MELLITUS
     Dosage: 270 MG (270 MG, 1 D) PER ORAL
     Route: 048
     Dates: start: 20030910, end: 20050607
  4. NATEGLINIDE [Suspect]
     Indication: INSULIN-REQUIRING TYPE II DIABETES MELLITUS
     Dosage: 270 MG (270 MG, 1 D) PER ORAL
     Route: 048
     Dates: start: 20060928
  5. TIMOPTOL-XE (TIMOLOL MALEATE) [Concomitant]

REACTIONS (1)
  - GASTROOESOPHAGEAL CANCER [None]
